FAERS Safety Report 8962345 (Version 1)
Quarter: 2012Q4

REPORT INFORMATION
  Report Type: Spontaneous
  Country: US (occurrence: None)
  Receive Date: 20121211
  Receipt Date: 20121211
  Transmission Date: 20130627
  Serious: Yes (Disabling, Other)
  Sender: FDA-Public Use
  Company Number: None

PATIENT
  Age: 53 Year
  Sex: Female
  Weight: 50.35 kg

DRUGS (4)
  1. LORTAB [Suspect]
     Indication: WHIPLASH INJURY
     Dosage: 10mg 4x daily
     Dates: start: 1987, end: 2012
  2. LORTAB [Suspect]
     Indication: PAIN IN ARM
     Dosage: 10mg 4x daily
     Dates: start: 1987, end: 2012
  3. LORTAB [Suspect]
     Indication: LEG PAIN
     Dosage: 10mg 4x daily
     Dates: start: 1987, end: 2012
  4. LORTAB [Suspect]
     Indication: FIBROMYALGIA
     Dosage: 10mg 4x daily
     Dates: start: 1987, end: 2012

REACTIONS (1)
  - Deafness [None]
